FAERS Safety Report 5340947-5 (Version None)
Quarter: 2007Q2

REPORT INFORMATION
  Report Type: 
  Country: None (occurrence: None)
  Receive Date: 20070405
  Receipt Date: 20061102
  Transmission Date: 20071010
  Serious: No
  Sender: FDA-Public Use
  Company Number: US200606001214

PATIENT
  Age: 50 Year
  Sex: Female

DRUGS (9)
  1. CYMBALTA [Suspect]
     Indication: RESTLESSNESS
     Dosage: 30 MG, DAILY (1/D)
     Dates: start: 20060601
  2. PROZAC [Suspect]
     Indication: MIGRAINE
     Dosage: SEE IMAGE
     Route: 048
  3. ALLEGRA-D /10367401/ (FEXOFENADINE HYDROCHLORIDE, PSEUDOEPHEDRINE HYDR [Concomitant]
  4. XANAX /USA/ (ALPRAZOLAM) [Concomitant]
  5. ZOMIG [Concomitant]
  6. FIORICET [Concomitant]
  7. PHENERGAN [Concomitant]
  8. PREMARIN [Concomitant]
  9. ATENOLOL [Concomitant]

REACTIONS (5)
  - DRUG INEFFECTIVE [None]
  - FEELING JITTERY [None]
  - HEADACHE [None]
  - NAUSEA [None]
  - PSYCHOMOTOR HYPERACTIVITY [None]
